FAERS Safety Report 25229990 (Version 1)
Quarter: 2025Q2

REPORT INFORMATION
  Report Type: Spontaneous
  Country: US (occurrence: None)
  Receive Date: 20250422
  Receipt Date: 20250422
  Transmission Date: 20250716
  Serious: Yes (Other)
  Sender: FDA-CTU
  Company Number: None

PATIENT
  Age: 31 Year
  Sex: Female

DRUGS (4)
  1. BUPRENORPHINE\NALOXONE [Suspect]
     Active Substance: BUPRENORPHINE\NALOXONE
     Indication: Drug dependence
     Dosage: FREQUENCY : DAILY;?
     Route: 060
  2. Buprenorphine-Naloxone Tablet [Concomitant]
     Dates: start: 20250301, end: 20250421
  3. SUBOXONE [Concomitant]
     Active Substance: BUPRENORPHINE HYDROCHLORIDE\NALOXONE HYDROCHLORIDE
     Dates: start: 20241101, end: 20250101
  4. BUPRENORPHINE HYDROCHLORIDE\NALOXONE HYDROCHLORIDE [Concomitant]
     Active Substance: BUPRENORPHINE HYDROCHLORIDE\NALOXONE HYDROCHLORIDE
     Dates: start: 20250101, end: 20250228

REACTIONS (3)
  - Maternal exposure during pregnancy [None]
  - Drug ineffective [None]
  - Drug interaction [None]

NARRATIVE: CASE EVENT DATE: 20250422
